FAERS Safety Report 8286748-X (Version None)
Quarter: 2012Q2

REPORT INFORMATION
  Report Type: 
  Country: None (occurrence: None)
  Receive Date: 20120416
  Receipt Date: 20120406
  Transmission Date: 20120825
  Serious: Yes (Hospitalization)
  Sender: FDA-Public Use
  Company Number: US-ASTRAZENECA-2011SE72006

PATIENT
  Age: 59 Year
  Sex: Female

DRUGS (1)
  1. NEXIUM [Suspect]
     Route: 048

REACTIONS (5)
  - VOMITING [None]
  - LOWER RESPIRATORY TRACT INFECTION VIRAL [None]
  - PNEUMONIA [None]
  - DRUG DOSE OMISSION [None]
  - ADVERSE EVENT [None]
